FAERS Safety Report 7515853-8 (Version None)
Quarter: 2011Q2

REPORT INFORMATION
  Report Type: 
  Country: None (occurrence: None)
  Receive Date: 20110601
  Receipt Date: 20110526
  Transmission Date: 20111010
  Serious: No
  Sender: FDA-Public Use
  Company Number: US-PFIZER INC-2011114647

PATIENT
  Sex: Female
  Weight: 63.5 kg

DRUGS (2)
  1. PREMARIN [Suspect]
     Dosage: 0.3 MG, DAILY
     Dates: start: 20110501
  2. PREMARIN [Suspect]
     Indication: OESTROGEN REPLACEMENT THERAPY
     Dosage: 0.625 MG, DAILY

REACTIONS (5)
  - INSOMNIA [None]
  - HEADACHE [None]
  - OEDEMA PERIPHERAL [None]
  - IRRITABILITY [None]
  - HOT FLUSH [None]
